FAERS Safety Report 20082466 (Version 2)
Quarter: 2022Q1

REPORT INFORMATION
  Report Type: Report from Study
  Country: FR (occurrence: FR)
  Receive Date: 20211117
  Receipt Date: 20220106
  Transmission Date: 20220423
  Serious: Yes (Hospitalization)
  Sender: FDA-Public Use
  Company Number: FR-NOVARTISPH-NVSC2021FR262288

PATIENT
  Age: 66 Year
  Sex: Female

DRUGS (1)
  1. ERELZI [Suspect]
     Active Substance: ETANERCEPT-SZZS
     Indication: Rheumatoid arthritis
     Dosage: 47, QD
     Route: 058
     Dates: start: 20200319, end: 20210128

REACTIONS (1)
  - Diverticulum intestinal [Recovered/Resolved]

NARRATIVE: CASE EVENT DATE: 20210203
